FAERS Safety Report 25866964 (Version 1)
Quarter: 2025Q4

REPORT INFORMATION
  Report Type: Spontaneous
  Country: US (occurrence: US)
  Receive Date: 20251001
  Receipt Date: 20251001
  Transmission Date: 20260117
  Serious: Yes (Other)
  Sender: AUROBINDO
  Company Number: US-AUROBINDO-AUR-APL-2025-048432

PATIENT
  Age: 7 Decade

DRUGS (3)
  1. METFORMIN [Suspect]
     Active Substance: METFORMIN HYDROCHLORIDE
     Indication: Diabetes mellitus
     Dosage: UNK
     Route: 065
  2. NELVUTAMIG [Concomitant]
     Active Substance: NELVUTAMIG
     Indication: Metastatic malignant melanoma
     Dosage: UNK (EVERY 3 WEEKS
     Route: 065
  3. NIVOLUMAB [Concomitant]
     Active Substance: NIVOLUMAB
     Indication: Metastatic malignant melanoma
     Dosage: UNK (EVERY 3 WEEKS)
     Route: 065

REACTIONS (1)
  - Drug ineffective [Unknown]
